FAERS Safety Report 4513027-6 (Version None)
Quarter: 2004Q4

REPORT INFORMATION
  Report Type: 
  Country: None (occurrence: None)
  Receive Date: 20041130
  Receipt Date: 20041118
  Transmission Date: 20050328
  Serious: Yes (Death, Hospitalization)
  Sender: FDA-Public Use
  Company Number: US-JNJFOC-20041006489

PATIENT
  Age: 86 Year
  Sex: Male

DRUGS (2)
  1. DITROPAN XL [Suspect]
     Route: 049
  2. FLOMAX [Concomitant]

REACTIONS (9)
  - ASTHENIA [None]
  - CIRCULATORY COLLAPSE [None]
  - DECREASED APPETITE [None]
  - DYSPNOEA [None]
  - LOSS OF CONSCIOUSNESS [None]
  - PYREXIA [None]
  - TACHYCARDIA [None]
  - WEIGHT DECREASED [None]
  - WHEEZING [None]
